FAERS Safety Report 7367261-0 (Version None)
Quarter: 2011Q1

REPORT INFORMATION
  Report Type: 
  Country: None (occurrence: None)
  Receive Date: 20110322
  Receipt Date: 20110311
  Transmission Date: 20110831
  Serious: Yes (Other)
  Sender: FDA-Public Use
  Company Number: US-PFIZER INC-2006031830

PATIENT
  Sex: Male
  Weight: 128 kg

DRUGS (51)
  1. INDAPAMIDE [Concomitant]
     Route: 048
  2. NAPROXEN [Concomitant]
     Route: 048
  3. TRAZODONE [Concomitant]
     Route: 048
  4. ALUMINUM HYDROXIDE/MAGNESIUM CARBONATE [Concomitant]
     Route: 048
  5. HYDROCORTISONE [Concomitant]
     Route: 061
  6. COLCHICINE [Concomitant]
     Route: 048
  7. ENOXAPARIN [Concomitant]
     Route: 058
  8. CITALOPRAM HYDROBROMIDE [Concomitant]
     Route: 048
  9. LORATADINE [Concomitant]
     Route: 048
  10. TIMOLOL [Concomitant]
     Route: 047
  11. MISOPROSTOL [Concomitant]
     Route: 048
  12. AZITHROMYCIN [Concomitant]
     Route: 048
  13. CHLORASEPTIC SORE THROAT SPRAY [Concomitant]
  14. SULFAMETHOXAZOLE AND TRIMETHOPRIM [Concomitant]
     Route: 048
  15. ATENOLOL [Concomitant]
     Route: 048
  16. LOVAZA [Concomitant]
     Route: 048
  17. BUTALBITAL ACETAMINOPHEN AND CAFFEINE [Concomitant]
     Route: 048
  18. POTASSIUM CHLORIDE [Concomitant]
     Route: 048
  19. HYPROMELLOSE [Concomitant]
     Route: 047
  20. BISMUTH SUBSALICYLATE [Concomitant]
  21. KETOROLAC [Concomitant]
     Route: 030
  22. CYCLOBENZAPRINE [Concomitant]
     Route: 048
  23. LATANOPROST [Concomitant]
     Route: 047
  24. POLYVINYL ALCOHOL [Concomitant]
     Route: 047
  25. ACETYLCYSTEINE [Concomitant]
     Route: 048
  26. ARTIFICIAL TEARS [Concomitant]
  27. NEURONTIN [Suspect]
     Indication: ILL-DEFINED DISORDER
     Dosage: UNK
     Dates: start: 19940101
  28. GUAIFENESIN DM [Concomitant]
     Route: 048
  29. MORPHINE [Concomitant]
     Route: 042
  30. NITROGLYCERIN [Concomitant]
     Route: 042
  31. TEMAZEPAM [Concomitant]
     Route: 048
  32. TRIAMCINOLONE [Concomitant]
     Route: 061
  33. CLOTRIMAZOLE [Concomitant]
     Route: 061
  34. FLUOCINOLONE ACETONIDE [Concomitant]
     Route: 061
  35. RANITIDINE [Concomitant]
     Route: 048
  36. PROPOXYPHENE NAPSYLATE W/ ACETAMINOPHEN [Concomitant]
     Route: 048
  37. MENTHOL/METHYL SALICYLATE [Concomitant]
     Route: 061
  38. METOCLOPRAMIDE [Concomitant]
     Route: 030
  39. HYDROCHLOROTHIAZIDE [Concomitant]
     Route: 048
  40. ACETYLSALICYLIC ACID SRT [Concomitant]
     Route: 048
  41. LISINOPRIL [Concomitant]
     Route: 048
  42. OMEPRAZOLE [Concomitant]
     Route: 048
  43. IBUPROFEN [Concomitant]
     Route: 048
  44. ACETAMINOPHEN AND OXYCODONE HCL [Concomitant]
     Route: 048
  45. CHLORHEXIDINE GLUCONATE [Concomitant]
     Route: 048
  46. NIACIN [Concomitant]
     Route: 048
  47. LACTIC ACID [Concomitant]
     Route: 061
  48. PSYLLIUM [Concomitant]
     Route: 048
  49. SIMVASTATIN [Concomitant]
     Route: 048
  50. GEMFIBROZIL [Concomitant]
     Route: 048
  51. SODIUM CHLORIDE [Concomitant]
     Route: 042

REACTIONS (9)
  - HOMICIDAL IDEATION [None]
  - POST-TRAUMATIC STRESS DISORDER [None]
  - SUICIDE ATTEMPT [None]
  - SUICIDAL IDEATION [None]
  - DRUG ABUSE [None]
  - DEPRESSION [None]
  - SCHIZOPHRENIA, PARANOID TYPE [None]
  - ANXIETY [None]
  - ALCOHOL ABUSE [None]
